FAERS Safety Report 10366192 (Version 1)
Quarter: 2014Q3

REPORT INFORMATION
  Report Type: Spontaneous
  Country: US (occurrence: None)
  Receive Date: 20140805
  Receipt Date: 20140805
  Transmission Date: 20150326
  Serious: Yes (Other)
  Sender: FDA-Public Use
  Company Number: None

PATIENT
  Age: 64 Year
  Sex: Male
  Weight: 74.84 kg

DRUGS (1)
  1. ALDARA [Suspect]
     Active Substance: IMIQUIMOD
     Indication: PRECANCEROUS SKIN LESION
     Dosage: LITTLE AMOUNT TWICE DAILY INTO THE HAIR

REACTIONS (2)
  - Alopecia [None]
  - Skin discolouration [None]

NARRATIVE: CASE EVENT DATE: 20140207
